FAERS Safety Report 5186518-5 (Version None)
Quarter: 2006Q4

REPORT INFORMATION
  Report Type: 
  Country: None (occurrence: None)
  Receive Date: 20061213
  Receipt Date: 20061128
  Transmission Date: 20070319
  Serious: Yes (Hospitalization)
  Sender: FDA-Public Use
  Company Number: 2006SP004205

PATIENT
  Sex: Female

DRUGS (3)
  1. LUNESTA [Suspect]
     Dosage: 54 MG;1X;ORAL
     Route: 048
  2. LEXAPRO [Suspect]
  3. WELLBUTRIN [Suspect]

REACTIONS (3)
  - COMA [None]
  - HYPERTENSION [None]
  - INCORRECT DOSE ADMINISTERED [None]
